FAERS Safety Report 25926587 (Version 1)
Quarter: 2025Q4

REPORT INFORMATION
  Report Type: Spontaneous
  Country: US (occurrence: None)
  Receive Date: 20251013
  Receipt Date: 20251013
  Transmission Date: 20260118
  Serious: No
  Sender: FDA-CTU
  Company Number: None

PATIENT
  Age: 46 Year
  Sex: Male
  Weight: 148.5 kg

DRUGS (2)
  1. CYANOCOBALAMIN\TIRZEPATIDE [Suspect]
     Active Substance: CYANOCOBALAMIN\TIRZEPATIDE
     Indication: Weight decreased
     Dosage: OTHER QUANTITY : 1 VIAL;?OTHER FREQUENCY : WEEKLY;?OTHER ROUTE : INJECTION (SUBCUTANEOUS);?
     Route: 050
  2. CYANOCOBALAMIN\TIRZEPATIDE [Suspect]
     Active Substance: CYANOCOBALAMIN\TIRZEPATIDE
     Indication: Metabolic disorder

REACTIONS (3)
  - Product label confusion [None]
  - Product label issue [None]
  - Suspected product quality issue [None]

NARRATIVE: CASE EVENT DATE: 20251006
